FAERS Safety Report 10652929 (Version 1)
Quarter: 2014Q4

REPORT INFORMATION
  Report Type: Spontaneous
  Country: CA (occurrence: CA)
  Receive Date: 20141215
  Receipt Date: 20141215
  Transmission Date: 20150529
  Serious: Yes (Hospitalization)
  Sender: FDA-Public Use
  Company Number: CA-MYLANLABS-2014M1013995

PATIENT

DRUGS (2)
  1. CISPLATIN. [Concomitant]
     Active Substance: CISPLATIN
     Indication: BLADDER TRANSITIONAL CELL CARCINOMA METASTATIC
     Dosage: 75 MG/M2, UNK
  2. FLUOROURACIL. [Suspect]
     Active Substance: FLUOROURACIL
     Indication: BLADDER TRANSITIONAL CELL CARCINOMA METASTATIC
     Dosage: 1000 MG/M2, QD FOR 4 DAYS, FIRST CYCLE

REACTIONS (1)
  - Cardiogenic shock [Recovering/Resolving]
